FAERS Safety Report 6654379-0 (Version None)
Quarter: 2010Q1

REPORT INFORMATION
  Report Type: 
  Country: None (occurrence: None)
  Receive Date: 20100326
  Receipt Date: 20100316
  Transmission Date: 20100710
  Serious: Yes (Hospitalization, Other)
  Sender: FDA-Public Use
  Company Number: JP-PFIZER INC-2010025260

PATIENT
  Age: 40 Year
  Sex: Male

DRUGS (9)
  1. ZOLOFT [Suspect]
     Indication: DEPRESSION
     Dosage: 25 MG, 1X/DAY
     Route: 048
     Dates: start: 20091124
  2. ZOLOFT [Suspect]
     Indication: MENTAL STATUS CHANGES
     Dosage: 50 MG, 1X/DAY
     Route: 048
     Dates: start: 20091208
  3. ZOLOFT [Suspect]
     Indication: DECREASED APPETITE
     Dosage: 75 MG, 1X/DAY
     Route: 048
     Dates: start: 20091222
  4. ZOLOFT [Suspect]
     Dosage: 100 MG, 1X/DAY
     Route: 048
     Dates: start: 20100112, end: 20100202
  5. LIMAS [Concomitant]
     Indication: BIPOLAR DISORDER
     Dosage: UNK
     Route: 048
     Dates: start: 20090528
  6. DEPAKENE [Concomitant]
     Route: 048
  7. LEVOTOMIN [Concomitant]
     Dosage: UNK
     Route: 048
     Dates: start: 20091222
  8. AMOBAN [Concomitant]
     Dosage: UNK
     Route: 048
     Dates: start: 20090912
  9. BROTIZOLAM [Concomitant]
     Dosage: UNK
     Route: 048
     Dates: start: 20090622

REACTIONS (7)
  - BIPOLAR DISORDER [None]
  - DECREASED APPETITE [None]
  - DEPRESSED MOOD [None]
  - EPILEPSY [None]
  - HYPOMANIA [None]
  - MANIA [None]
  - MENTAL STATUS CHANGES [None]
